FAERS Safety Report 9467039 (Version 2)
Quarter: 2013Q4

REPORT INFORMATION
  Report Type: Spontaneous
  Country: JP (occurrence: JP)
  Receive Date: 20130820
  Receipt Date: 20131002
  Transmission Date: 20140711
  Serious: Yes (Other)
  Sender: FDA-Public Use
  Company Number: JP-GLAXOSMITHKLINE-B0812240A

PATIENT
  Age: 79 Year
  Sex: Male
  Weight: 68 kg

DRUGS (7)
  1. AVOLVE [Suspect]
     Indication: BENIGN PROSTATIC HYPERPLASIA
     Dosage: .5MG PER DAY
     Route: 048
     Dates: start: 20120217, end: 20120227
  2. AVOLVE [Suspect]
     Indication: BENIGN PROSTATIC HYPERPLASIA
     Dosage: .5MG PER DAY
     Route: 048
     Dates: start: 20120427, end: 20120517
  3. CALBLOCK [Concomitant]
     Indication: HYPERTENSION
     Route: 048
  4. PARIET [Concomitant]
     Indication: GASTRIC ULCER
     Route: 048
  5. DEPAS [Concomitant]
     Route: 048
  6. MAGNESIUM OXIDE [Concomitant]
     Indication: CONSTIPATION
     Dosage: 990MG THREE TIMES PER DAY
     Route: 048
  7. DETRUSITOL [Concomitant]
     Indication: HYPERTONIC BLADDER
     Dosage: 4MG PER DAY
     Route: 048

REACTIONS (13)
  - Breast cancer male [Recovered/Resolved]
  - Intraductal proliferative breast lesion [Unknown]
  - Intraductal proliferative breast lesion [Unknown]
  - Breast cancer [Unknown]
  - Nipple exudate bloody [Unknown]
  - Gynaecomastia [Recovering/Resolving]
  - Intraductal papilloma of breast [Unknown]
  - Galactorrhoea [Recovering/Resolving]
  - Mammary duct ectasia [Unknown]
  - Breast hyperplasia [Unknown]
  - Excessive granulation tissue [Unknown]
  - Lymphocytic infiltration [Unknown]
  - Breast mass [Unknown]
